FAERS Safety Report 8899905 (Version 1)
Quarter: 2012Q4

REPORT INFORMATION
  Report Type: 
  Country: BR (occurrence: BR)
  Receive Date: 20121109
  Receipt Date: 20121109
  Transmission Date: 20130627
  Serious: Yes (Other)
  Sender: FDA-Public Use
  Company Number: PHHY2012BR102580

PATIENT
  Age: 76 Year
  Sex: Female
  Weight: 57 kg

DRUGS (9)
  1. ACLASTA [Suspect]
     Indication: OSTEOPENIA
     Dosage: 5 mg/100 ml 1 application per year
     Route: 042
     Dates: start: 20121105
  2. HYDROCHLOROTHIAZIDE [Concomitant]
     Indication: HYPERTENSION
     Dosage: 1 tablet per day
     Route: 048
  3. SIMVASTATIN [Concomitant]
     Indication: BLOOD CHOLESTEROL
     Dosage: 1 tablet per day
     Route: 048
  4. ATENOLOL [Concomitant]
     Indication: HYPERTENSION
     Dosage: 1 tablet per day
     Route: 048
  5. CAPTOPRIL [Concomitant]
     Indication: HYPERTENSION
     Dosage: 4 tablets per day
     Route: 048
  6. CALCIUM CARBONATE [Concomitant]
     Indication: BONE DISORDER
     Dosage: 1 sachet per day
     Route: 048
  7. GLUCOSAMINE [Concomitant]
     Indication: BONE DISORDER
     Dosage: 1 sachet per day
     Route: 048
  8. VITAMIN D3 [Concomitant]
     Indication: BONE DISORDER
     Dosage: 1 sachet per day
     Route: 048
  9. ESCITALOPRAM OXALATE [Concomitant]
     Indication: DEPRESSION
     Dosage: 1 tablet per day
     Route: 048

REACTIONS (2)
  - Pruritus [Not Recovered/Not Resolved]
  - Erythema [Not Recovered/Not Resolved]
